FAERS Safety Report 21062059 (Version 1)
Quarter: 2022Q3

REPORT INFORMATION
  Report Type: Spontaneous
  Country: ES (occurrence: ES)
  Receive Date: 20220710
  Receipt Date: 20220710
  Transmission Date: 20221026
  Serious: Yes (Death, Life-Threatening, Hospitalization, Other)
  Sender: FDA-Public Use
  Company Number: ES-BAYER-2022A027153

PATIENT
  Age: 67 Year
  Sex: Male

DRUGS (5)
  1. RIVAROXABAN [Suspect]
     Active Substance: RIVAROXABAN
     Indication: Product used for unknown indication
     Dosage: UNK
     Route: 048
  2. RIVAROXABAN [Suspect]
     Active Substance: RIVAROXABAN
     Dosage: UNK
     Route: 048
  3. AMLODIPINE [Suspect]
     Active Substance: AMLODIPINE BESYLATE
     Dosage: UNK
  4. LORAZEPAM [Suspect]
     Active Substance: LORAZEPAM
     Dosage: UNK
  5. SIMVASTATIN [Concomitant]
     Active Substance: SIMVASTATIN
     Dosage: UNK

REACTIONS (24)
  - Multiple organ dysfunction syndrome [Fatal]
  - Haemoptysis [Unknown]
  - Pulmonary alveolar haemorrhage [Unknown]
  - Respiratory disorder [Unknown]
  - Haemoptysis [Unknown]
  - Shock [Unknown]
  - Acute kidney injury [Unknown]
  - Cardiomyopathy [Unknown]
  - Haemodynamic instability [Unknown]
  - Neurological decompensation [Unknown]
  - Metabolic acidosis [Unknown]
  - Overdose [Unknown]
  - Pulmonary alveolar haemorrhage [Fatal]
  - Neurological decompensation [Fatal]
  - Acute kidney injury [Fatal]
  - Haemoptysis [Fatal]
  - Toxicity to various agents [Fatal]
  - Haemodynamic instability [Fatal]
  - Toxicity to various agents [Fatal]
  - Shock [Fatal]
  - Hyperlactacidaemia [Fatal]
  - Multiple organ dysfunction syndrome [Fatal]
  - Cardiomyopathy [Fatal]
  - Metabolic acidosis [Fatal]
